FAERS Safety Report 20547123 (Version 4)
Quarter: 2023Q4

REPORT INFORMATION
  Report Type: Spontaneous
  Country: US (occurrence: US)
  Receive Date: 20220303
  Receipt Date: 20231221
  Transmission Date: 20240110
  Serious: No
  Sender: FDA-Public Use
  Company Number: US-PFIZER INC-2021794685

PATIENT
  Age: 56 Year
  Sex: Female

DRUGS (5)
  1. XELJANZ XR [Suspect]
     Active Substance: TOFACITINIB CITRATE
     Dosage: 11 MG
     Dates: start: 20210611
  2. XELJANZ XR [Suspect]
     Active Substance: TOFACITINIB CITRATE
     Dosage: 11 MG
     Dates: start: 20210901
  3. XELJANZ XR [Suspect]
     Active Substance: TOFACITINIB CITRATE
     Dosage: UNK
     Dates: start: 20210811
  4. LYRICA [Suspect]
     Active Substance: PREGABALIN
     Dosage: UNK
  5. NAPROXEN [Suspect]
     Active Substance: NAPROXEN

REACTIONS (5)
  - Somnolence [Not Recovered/Not Resolved]
  - Urticaria [Recovering/Resolving]
  - Dysgeusia [Unknown]
  - Headache [Unknown]
  - Intentional dose omission [Unknown]

NARRATIVE: CASE EVENT DATE: 20220201
